FAERS Safety Report 10544373 (Version 2)
Quarter: 2014Q4

REPORT INFORMATION
  Report Type: Spontaneous
  Country: RU (occurrence: RU)
  Receive Date: 20141027
  Receipt Date: 20141027
  Transmission Date: 20150529
  Serious: Yes (Other)
  Sender: FDA-Public Use
  Company Number: RU-GLAXOSMITHKLINE-B0996868A

PATIENT
  Sex: Female

DRUGS (8)
  1. AVELOX [Suspect]
     Active Substance: MOXIFLOXACIN HYDROCHLORIDE
     Indication: TUBERCULOSIS
  2. EPIVIR [Suspect]
     Active Substance: LAMIVUDINE
     Indication: HIV INFECTION
     Route: 065
     Dates: start: 201404
  3. VIDEX [Suspect]
     Active Substance: DIDANOSINE
     Indication: HIV INFECTION
     Route: 065
     Dates: start: 201404
  4. CAPREOMYCIN [Suspect]
     Active Substance: CAPREOMYCIN
     Indication: TUBERCULOSIS
     Route: 065
  5. PYRAZINAMIDE. [Suspect]
     Active Substance: PYRAZINAMIDE
     Indication: TUBERCULOSIS
     Route: 065
  6. CYCLOSERINE. [Suspect]
     Active Substance: CYCLOSERINE
     Indication: TUBERCULOSIS
     Route: 065
  7. PASK [Suspect]
     Active Substance: AMINOSALICYLATE SODIUM
     Indication: TUBERCULOSIS
     Route: 065
  8. VIRAMUNE [Suspect]
     Active Substance: NEVIRAPINE
     Indication: HIV INFECTION
     Route: 065
     Dates: start: 201404

REACTIONS (11)
  - Ill-defined disorder [Not Recovered/Not Resolved]
  - Tinnitus [Unknown]
  - Nasopharyngitis [Unknown]
  - Muscle contractions involuntary [Unknown]
  - Crying [Unknown]
  - Tremor [Unknown]
  - Loss of consciousness [Unknown]
  - Polymenorrhoea [Unknown]
  - Irritability [Unknown]
  - Pyrexia [Unknown]
  - Parosmia [None]

NARRATIVE: CASE EVENT DATE: 201404
